FAERS Safety Report 12115547 (Version 2)
Quarter: 2016Q3

REPORT INFORMATION
  Report Type: Spontaneous
  Country: JP (occurrence: JP)
  Receive Date: 20160225
  Receipt Date: 20160826
  Transmission Date: 20161109
  Serious: Yes (Life-Threatening)
  Sender: FDA-Public Use
  Company Number: JP-MALLINCKRODT-T201600631

PATIENT
  Age: 68 Year
  Sex: Female
  Weight: 51 kg

DRUGS (15)
  1. METHADONE [Suspect]
     Active Substance: METHADONE HYDROCHLORIDE
     Dosage: 10 MG (20 MG DAILY DOSE)
     Route: 048
     Dates: start: 20150428
  2. CYMBALTA [Concomitant]
     Active Substance: DULOXETINE HYDROCHLORIDE
     Indication: ANALGESIC THERAPY
     Dosage: 20 MG
     Route: 048
     Dates: start: 20150417
  3. KETALAR [Concomitant]
     Active Substance: KETAMINE HYDROCHLORIDE
     Indication: ANALGESIC THERAPY
     Dosage: 80 MG
     Route: 048
     Dates: start: 20150422, end: 20150427
  4. RINDERON V [Concomitant]
     Active Substance: BETAMETHASONE VALERATE
     Dosage: 8 MG
     Route: 051
     Dates: start: 20150426, end: 20150426
  5. REMERON [Concomitant]
     Active Substance: MIRTAZAPINE
     Dosage: 15 MG
     Route: 048
     Dates: start: 20150417
  6. TENORMIN [Concomitant]
     Active Substance: ATENOLOL
     Dosage: 50 MG
     Route: 048
  7. HYPEN [Concomitant]
     Active Substance: ETODOLAC
     Indication: ANALGESIC THERAPY
     Dosage: 400 MG
     Route: 048
  8. OXINORM [Concomitant]
     Active Substance: OXYCODONE HYDROCHLORIDE
     Indication: ANALGESIC THERAPY
     Dosage: 10 MG PRN
     Route: 048
     Dates: start: 20150423
  9. SOL-MELCORT [Concomitant]
     Active Substance: METHYLPREDNISOLONE SODIUM SUCCINATE
     Indication: ANALGESIC THERAPY
     Dosage: 500 MG
     Route: 051
     Dates: start: 20150422, end: 20150424
  10. TAKEPRON [Concomitant]
     Active Substance: LANSOPRAZOLE
     Dosage: 15 MG
     Route: 048
  11. RINDERON V [Concomitant]
     Active Substance: BETAMETHASONE VALERATE
     Dosage: 4 MG
     Route: 051
     Dates: start: 20150427, end: 20150427
  12. ROHYPNOL [Concomitant]
     Active Substance: FLUNITRAZEPAM
     Dosage: 2 MG
     Route: 048
     Dates: start: 20150417
  13. BLOPRESS [Concomitant]
     Active Substance: CANDESARTAN CILEXETIL
     Dosage: 8 MG
     Route: 048
  14. METHADONE [Suspect]
     Active Substance: METHADONE HYDROCHLORIDE
     Indication: CANCER PAIN
     Dosage: 5 MG (15 MG DAILY DOSE)
     Route: 048
     Dates: start: 20150423, end: 20150427
  15. RINDERON V [Concomitant]
     Active Substance: BETAMETHASONE VALERATE
     Dosage: 2 MG
     Route: 051
     Dates: start: 20150428

REACTIONS (1)
  - Cardiac tamponade [Recovered/Resolved]

NARRATIVE: CASE EVENT DATE: 20150428
